FAERS Safety Report 14300889 (Version 4)
Quarter: 2018Q1

REPORT INFORMATION
  Report Type: Report from Study
  Country: BR (occurrence: BR)
  Receive Date: 20171219
  Receipt Date: 20180125
  Transmission Date: 20180509
  Serious: Yes (Other)
  Sender: FDA-Public Use
  Company Number: PHHY2017BR188509

PATIENT
  Sex: Female
  Weight: 50 kg

DRUGS (9)
  1. PROLIA [Concomitant]
     Active Substance: DENOSUMAB
     Indication: OSTEOPOROSIS
     Dosage: 1 DF, EVERY 6 MONTHS (IN USE FOR A LONG WHILE)
     Route: 058
     Dates: start: 201711
  2. ALENIA [Concomitant]
     Active Substance: BUDESONIDE\FORMOTEROL FUMARATE
     Indication: ASTHMA
     Dosage: 1 DF, QD (IN TREATMENT FOR 3 YEARS) (12/400 MCG)
     Route: 055
  3. ACLASTA [Suspect]
     Active Substance: ZOLEDRONIC ACID
     Indication: OSTEOPOROSIS
     Dosage: 1 DF (5 MG/100 ML), Q12MO
     Route: 042
     Dates: start: 2015
  4. ACLASTA [Suspect]
     Active Substance: ZOLEDRONIC ACID
     Dosage: 1 DF (5 MG/100 ML), Q12MO
     Route: 042
     Dates: start: 20161005, end: 20161005
  5. VITAMIN D [Concomitant]
     Active Substance: CHOLECALCIFEROL
     Indication: OSTEOPOROSIS
     Dosage: 1 DF (1 CAPSULE), QW (IN USE FOR A LONG WHILE)
     Route: 048
  6. CENTRUM [Concomitant]
     Active Substance: VITAMINS
     Indication: PRODUCT USED FOR UNKNOWN INDICATION
     Dosage: 1 DF, QD (IN USE FOR LONG TIME)
     Route: 048
  7. SINGULAIR [Concomitant]
     Active Substance: MONTELUKAST SODIUM
     Indication: ASTHMA
     Dosage: 1 DF (10 MG), QD (IN TREATMENT FOR 3 YEARS)
     Route: 048
  8. PRIMIDONE. [Concomitant]
     Active Substance: PRIMIDONE
     Indication: TREMOR
     Dosage: 0.5 DF, QD (IN TREATMENT FOR 6 YEARS)
     Route: 065
  9. CALDE K2 [Concomitant]
     Active Substance: CALCIUM\MENAQUINONE 6\VITAMIN D
     Indication: OSTEOPOROSIS
     Dosage: 1 DF (500 MG), QD (IN USE FOR A LONG TIME)
     Route: 048

REACTIONS (4)
  - Drug ineffective [Unknown]
  - Cataract [Unknown]
  - Osteopenia [Unknown]
  - Malaise [Unknown]

NARRATIVE: CASE EVENT DATE: 2016
